FAERS Safety Report 8155148-5 (Version None)
Quarter: 2012Q1

REPORT INFORMATION
  Report Type: 
  Country: None (occurrence: None)
  Receive Date: 20120221
  Receipt Date: 20110714
  Transmission Date: 20120608
  Serious: Yes (Death, Other)
  Sender: FDA-Public Use
  Company Number: PHHY2011JP55815

PATIENT
  Age: 69 Year
  Sex: Female

DRUGS (6)
  1. PRIMOBOLAN-DEPOT INJ [Concomitant]
     Indication: APLASTIC ANAEMIA
     Dosage: UNK UKN, UNK
     Dates: start: 20100601
  2. BLOOD AND RELATED PRODUCTS [Concomitant]
     Dosage: UNK UKN, UNK
     Dates: start: 20100801
  3. ANTI-THYMOCYTE GLOBULIN EQUINE NOS [Suspect]
     Indication: APLASTIC ANAEMIA
     Dosage: 3.5 MG/KG FOR FIVE DAYS
     Dates: start: 20100915
  4. FOSCAVIR [Suspect]
     Dosage: UNK UKN, UNK
  5. NEORAL [Suspect]
     Indication: APLASTIC ANAEMIA
     Dosage: 200 MG, QD
     Route: 048
     Dates: start: 20100501
  6. NEUPOGEN [Concomitant]
     Dosage: UNK UKN, UNK
     Dates: start: 20100915

REACTIONS (14)
  - LYMPHANGIOPATHY [None]
  - LACTIC ACIDOSIS [None]
  - HEPATOMEGALY [None]
  - RESPIRATORY DISORDER [None]
  - EPSTEIN-BARR VIRUS INFECTION [None]
  - PYREXIA [None]
  - DIFFUSE LARGE B-CELL LYMPHOMA [None]
  - LIVER DISORDER [None]
  - JAUNDICE [None]
  - STENOTROPHOMONAS INFECTION [None]
  - ANAEMIA [None]
  - MULTI-ORGAN FAILURE [None]
  - RENAL DISORDER [None]
  - CYTOMEGALOVIRUS INFECTION [None]
